FAERS Safety Report 8378915-1 (Version None)
Quarter: 2012Q2

REPORT INFORMATION
  Report Type: 
  Country: None (occurrence: None)
  Receive Date: 20120523
  Receipt Date: 20120521
  Transmission Date: 20120825
  Serious: No
  Sender: FDA-Public Use
  Company Number: US-PFIZER INC-2012122841

PATIENT
  Sex: Female
  Weight: 56.236 kg

DRUGS (6)
  1. XALKORI [Suspect]
     Dosage: 200 MG, 2X/DAY
     Dates: start: 20120101
  2. VITAMIN D [Concomitant]
     Dosage: 3000 IU, DAILY
     Dates: start: 20120101
  3. XALKORI [Suspect]
     Indication: LUNG ADENOCARCINOMA
     Dosage: 250 MG, 2X/DAY
     Dates: start: 20111201, end: 20120101
  4. VITAMIN D [Concomitant]
     Dosage: 2000 IU, DAILY
     Dates: start: 20110101
  5. LEVOTHYROXINE SODIUM [Concomitant]
     Indication: THYROIDECTOMY
     Dosage: 50 UG, DAILY
  6. VITAMIN D [Concomitant]
     Indication: VITAMIN D DEFICIENCY
     Dosage: 1000 IU, DAILY
     Dates: start: 20110101

REACTIONS (3)
  - DISEASE PROGRESSION [None]
  - HEPATIC ENZYME INCREASED [None]
  - LUNG ADENOCARCINOMA [None]
